FAERS Safety Report 4301465-6 (Version None)
Quarter: 2004Q1

REPORT INFORMATION
  Report Type: 
  Country: None (occurrence: None)
  Receive Date: 20040219
  Receipt Date: 20040212
  Transmission Date: 20041129
  Serious: Yes (Disabling)
  Sender: FDA-Public Use
  Company Number: 2003UW17038

PATIENT
  Age: 42 Year
  Sex: Male
  Weight: 81.6475 kg

DRUGS (43)
  1. SEROQUEL [Suspect]
     Indication: BIPOLAR DISORDER
     Dates: start: 19990614
  2. SEROQUEL [Suspect]
     Indication: BIPOLAR DISORDER
     Dosage: 100 MG DAILY PO
     Route: 048
     Dates: start: 19990713, end: 19990908
  3. SEROQUEL [Suspect]
     Indication: BIPOLAR DISORDER
     Dosage: 150 MG DAILY PO
     Route: 048
     Dates: start: 19990908, end: 19990914
  4. SEROQUEL [Suspect]
     Indication: BIPOLAR DISORDER
     Dosage: 200 MG DAILY PO
     Route: 048
     Dates: start: 19990914, end: 19990930
  5. SEROQUEL [Suspect]
     Indication: BIPOLAR DISORDER
     Dosage: 250 MG DAILY PO
     Route: 048
     Dates: start: 19990930, end: 19991120
  6. SEROQUEL [Suspect]
     Indication: BIPOLAR DISORDER
     Dosage: 300 MG DAILY PO
     Route: 048
     Dates: start: 19991120, end: 20000229
  7. SEROQUEL [Suspect]
     Indication: BIPOLAR DISORDER
     Dosage: 400 MG DAILY PO
     Route: 048
     Dates: start: 20000229, end: 20000308
  8. SEROQUEL [Suspect]
     Dosage: 500 MG DAILY PO
     Route: 048
     Dates: start: 20000308, end: 20000322
  9. SEROQUEL [Suspect]
     Dosage: 600 MG DAILY PO
     Route: 048
     Dates: start: 20000322, end: 20000523
  10. SEROQUEL [Suspect]
     Dosage: 400 MG DAILY PO
     Route: 048
     Dates: start: 20000523, end: 20000808
  11. SEROQUEL [Suspect]
     Dosage: 200 MG DAILY PO
     Route: 048
     Dates: start: 20000808, end: 20000901
  12. SEROQUEL [Suspect]
     Dosage: 300 MG DAILY PO
     Route: 048
     Dates: start: 20000901, end: 20000912
  13. SEROQUEL [Suspect]
     Dosage: 200 MG DAILY PO
     Route: 048
     Dates: start: 20000912, end: 20000919
  14. SEROQUEL [Suspect]
     Dosage: 100 MG DAILY PO
     Route: 048
     Dates: start: 20000919, end: 20000924
  15. TEGRETOL-XR [Suspect]
     Dosage: 2200 MG DAILY
     Dates: start: 19970123, end: 19990722
  16. TEGRETOL-XR [Suspect]
     Dosage: 2000 MG DAILY
     Dates: start: 19990722, end: 19990901
  17. TEGRETOL-XR [Suspect]
     Dosage: 1800 MG DAILY
     Dates: start: 19990901, end: 19990329
  18. TEGRETOL-XR [Suspect]
     Dosage: 1600 MG DAILY
     Dates: start: 20000329, end: 20000419
  19. TEGRETOL-XR [Suspect]
     Dosage: 1000 MG DAILY
     Dates: start: 20000419, end: 20000731
  20. TEGRETOL [Suspect]
     Dates: start: 19820105, end: 19970123
  21. TEGRETOL [Suspect]
     Dosage: 600 MG DAILY
     Dates: start: 20000927, end: 20001002
  22. TEGRETOL [Suspect]
     Dosage: 800 MG DAILY
     Dates: start: 20001002, end: 20001018
  23. TEGRETOL [Suspect]
     Dosage: 1000 MG DAILY
     Dates: start: 20001018, end: 20001212
  24. TEGRETOL [Suspect]
     Dosage: 1200 MG DAILY
     Dates: start: 20001212, end: 20010924
  25. TEGRETOL [Suspect]
     Dosage: 1800 MG DAILY
     Dates: start: 20010924, end: 20011004
  26. TEGRETOL [Suspect]
     Dosage: 2000 MG DAILY
     Dates: start: 20011004, end: 20020605
  27. TEGRETOL [Suspect]
     Dosage: 1800 MG DAILY
     Dates: start: 20020605, end: 20020612
  28. TEGRETOL [Suspect]
     Dosage: 2000 MG DAILY
     Dates: start: 20020612, end: 20020724
  29. TEGRETOL [Suspect]
     Dosage: 1800 MG DAILY
     Dates: start: 20020724, end: 20020802
  30. TEGRETOL [Suspect]
     Dosage: 1600 MKG DAILY
     Dates: start: 20020802, end: 20020807
  31. TEGRETOL [Suspect]
     Dosage: 1400 MG DAILY
     Dates: start: 20020807
  32. TRILEPTAL [Suspect]
     Dosage: 900 MG DAILY
     Dates: start: 20000731, end: 20000808
  33. TRILEPTAL [Suspect]
     Dosage: 1200 MG DAILY
     Dates: start: 20000808, end: 20000824
  34. TRILEPTAL [Suspect]
     Dosage: 1500 MG DAILY
     Dates: start: 20000824, end: 20000901
  35. TRILEPTAL [Suspect]
     Dosage: 900 MG DAILY
     Dates: start: 20000901, end: 20000927
  36. SYNTHROID [Concomitant]
  37. LEVOTHYROXINE SODIUM [Concomitant]
  38. SURFAK [Concomitant]
  39. MILK OF MAGNESIA TAB [Concomitant]
  40. RISPERIDONE [Concomitant]
  41. ARICEPT [Concomitant]
  42. OLANZAPINE [Concomitant]
  43. LITHIUM [Concomitant]

REACTIONS (4)
  - ABNORMAL BEHAVIOUR [None]
  - ATAXIA [None]
  - DRUG INTERACTION [None]
  - DRUG TOXICITY [None]
